FAERS Safety Report 4382370-6 (Version None)
Quarter: 2004Q2

REPORT INFORMATION
  Report Type: 
  Country: None (occurrence: None)
  Receive Date: 20040615
  Receipt Date: 20040601
  Transmission Date: 20050107
  Serious: No
  Sender: FDA-Public Use
  Company Number: 092300

PATIENT
  Age: 14 Year
  Sex: Male
  Weight: 73.4 kg

DRUGS (1)
  1. NUTROPIN AQ [Suspect]
     Indication: GROWTH HORMONE DEFICIENCY
     Dosage: 3.15 MG, QD, SUBCUTANEOUS
     Route: 058
     Dates: start: 19960701, end: 19990121

REACTIONS (2)
  - DIABETES MELLITUS [None]
  - DIABETIC KETOACIDOSIS [None]
